FAERS Safety Report 18584011 (Version 2)
Quarter: 2021Q1

REPORT INFORMATION
  Report Type: Spontaneous
  Country: US (occurrence: US)
  Receive Date: 20201207
  Receipt Date: 20210107
  Transmission Date: 20210419
  Serious: No
  Sender: FDA-Public Use
  Company Number: US-ALK-ABELLO A/S-2020AA003844

PATIENT

DRUGS (4)
  1. AZELASTINE. [Concomitant]
     Active Substance: AZELASTINE HYDROCHLORIDE
     Indication: PRODUCT USED FOR UNKNOWN INDICATION
  2. ODACTRA [Suspect]
     Active Substance: DERMATOPHAGOIDES FARINAE\DERMATOPHAGOIDES PTERONYSSINUS
     Indication: PRODUCT USED FOR UNKNOWN INDICATION
     Dosage: UNK
     Route: 060
     Dates: start: 20201001
  3. FLUTICASONE. [Concomitant]
     Active Substance: FLUTICASONE
     Indication: PRODUCT USED FOR UNKNOWN INDICATION
  4. ROSUVASTATIN CALCIUM. [Concomitant]
     Active Substance: ROSUVASTATIN CALCIUM
     Indication: PRODUCT USED FOR UNKNOWN INDICATION

REACTIONS (7)
  - Paraesthesia oral [Recovered/Resolved]
  - Dysphagia [Recovered/Resolved]
  - Mouth swelling [Recovered/Resolved]
  - Swollen tongue [Recovered/Resolved]
  - Tongue pruritus [Recovered/Resolved]
  - Pharyngeal swelling [Recovered/Resolved]
  - Salivary gland enlargement [Recovered/Resolved]
